FAERS Safety Report 8454897-9 (Version None)
Quarter: 2012Q2

REPORT INFORMATION
  Report Type: 
  Country: None (occurrence: None)
  Receive Date: 20120621
  Receipt Date: 20120607
  Transmission Date: 20120825
  Serious: Yes (Disabling)
  Sender: FDA-Public Use
  Company Number: GB-RANBAXY-2012R1-57096

PATIENT
  Age: 83 Year
  Sex: Female
  Weight: 50 kg

DRUGS (4)
  1. CITALOPRAM [Concomitant]
     Indication: ANXIETY
     Dosage: 10 MG, 1 DAYS
     Route: 065
  2. CITALOPRAM [Concomitant]
     Indication: DEPRESSION
  3. SIMVASTATIN [Suspect]
     Indication: PRODUCT USED FOR UNKNOWN INDICATION
     Dosage: 40 MG, 1 DAYS
     Route: 048
     Dates: start: 20120504, end: 20120518
  4. CLOPIDOGREL [Suspect]
     Indication: PRODUCT USED FOR UNKNOWN INDICATION
     Dosage: 75 MG, 1 DAYS
     Route: 048
     Dates: start: 20120504, end: 20120518

REACTIONS (2)
  - PANIC ATTACK [None]
  - ANXIETY [None]
